FAERS Safety Report 8094094-2 (Version None)
Quarter: 2012Q1

REPORT INFORMATION
  Report Type: 
  Country: None (occurrence: None)
  Receive Date: 20120131
  Receipt Date: 20120126
  Transmission Date: 20120608
  Serious: Yes (Death, Hospitalization)
  Sender: FDA-Public Use
  Company Number: DE-SANOFI-AVENTIS-2010SA065578

PATIENT
  Age: 70 Year
  Sex: Female
  Weight: 88 kg

DRUGS (17)
  1. DEXAMETHASONE [Concomitant]
     Indication: PROPHYLAXIS
     Route: 042
     Dates: start: 20101007, end: 20101007
  2. DEXAMETHASONE [Concomitant]
     Route: 048
     Dates: start: 20101006, end: 20101008
  3. ONDANSETRON HCL [Concomitant]
     Indication: PROPHYLAXIS
     Route: 042
     Dates: start: 20101007, end: 20101007
  4. RANITIDINE [Concomitant]
     Indication: PROPHYLAXIS
     Route: 042
     Dates: start: 20101007, end: 20101007
  5. CYCLOPHOSPHAMIDE [Suspect]
     Route: 041
  6. OXYCODONE HCL [Concomitant]
     Indication: PAIN
     Route: 048
  7. RAMIPRIL [Concomitant]
     Indication: HYPERTENSION
     Route: 048
  8. DOCETAXEL [Suspect]
     Indication: BREAST CANCER
     Route: 041
     Dates: start: 20101007, end: 20101007
  9. DOCETAXEL [Suspect]
     Route: 041
  10. CYCLOPHOSPHAMIDE [Suspect]
     Indication: BREAST CANCER
     Route: 041
     Dates: start: 20101007, end: 20101007
  11. UROMITEXAN [Concomitant]
     Indication: PROPHYLAXIS
     Route: 048
     Dates: start: 20101007, end: 20101007
  12. ONDANSETRON HCL [Concomitant]
     Route: 048
     Dates: start: 20101007, end: 20101007
  13. DEXAMETHASONE [Concomitant]
  14. NEULASTA [Concomitant]
     Indication: PROPHYLAXIS
     Route: 042
     Dates: start: 20101008, end: 20101008
  15. DEXAMETHASONE [Concomitant]
     Route: 048
     Dates: start: 20101007, end: 20101007
  16. ONDANSETRON HCL [Concomitant]
     Route: 048
     Dates: start: 20101008, end: 20101009
  17. PRAMIPEXOLE DIHYDROCHLORIDE [Concomitant]
     Indication: RESTLESS LEGS SYNDROME
     Route: 048

REACTIONS (5)
  - ASTHENIA [None]
  - FATIGUE [None]
  - DEHYDRATION [None]
  - PULMONARY EMBOLISM [None]
  - GENERAL PHYSICAL HEALTH DETERIORATION [None]
